FAERS Safety Report 13197304 (Version 1)
Quarter: 2017Q1

REPORT INFORMATION
  Report Type: Spontaneous
  Country: US (occurrence: US)
  Receive Date: 20170207
  Receipt Date: 20170207
  Transmission Date: 20170428
  Serious: No
  Sender: FDA-Public Use
  Company Number: None

PATIENT
  Age: 52 Year
  Sex: Female

DRUGS (1)
  1. HUMIRA [Suspect]
     Active Substance: ADALIMUMAB
     Indication: ARTHRALGIA
     Dosage: 40MG EVERY 14 DAYS SUBCUTANEOUSLY
     Route: 058
     Dates: start: 20161209

REACTIONS (2)
  - Pulmonary congestion [None]
  - Abdominal discomfort [None]

NARRATIVE: CASE EVENT DATE: 20170203
